FAERS Safety Report 12299486 (Version 1)
Quarter: 2016Q2

REPORT INFORMATION
  Report Type: Spontaneous
  Country: US (occurrence: None)
  Receive Date: 20160422
  Receipt Date: 20160422
  Transmission Date: 20160815
  Serious: No
  Sender: FDA-Public Use
  Company Number: None

PATIENT
  Age: 65 Year
  Sex: Female

DRUGS (9)
  1. ENBREL [Suspect]
     Active Substance: ETANERCEPT
     Indication: RHEUMATOID ARTHRITIS
     Dosage: 50 MG/ML WEEKLY SUBCUTANEOUS
     Route: 058
     Dates: start: 20091124
  2. LISINOPRIL. [Concomitant]
     Active Substance: LISINOPRIL
  3. XARELTO [Concomitant]
     Active Substance: RIVAROXABAN
  4. METHOTREXATE [Concomitant]
     Active Substance: METHOTREXATE
  5. METOPROLOL TARTRATE. [Concomitant]
     Active Substance: METOPROLOL TARTRATE
  6. ASPIRIN. [Concomitant]
     Active Substance: ASPIRIN
  7. TRIAMTERENE AND HYDROCHLOROTHIAZIDE [Concomitant]
     Active Substance: HYDROCHLOROTHIAZIDE\TRIAMTERENE
  8. VITAMIN D [Concomitant]
     Active Substance: CHOLECALCIFEROL
  9. FOLIC ACID. [Concomitant]
     Active Substance: FOLIC ACID

REACTIONS (2)
  - Drug dose omission [None]
  - Bronchitis [None]

NARRATIVE: CASE EVENT DATE: 20160420
